FAERS Safety Report 26211703 (Version 1)
Quarter: 2025Q4

REPORT INFORMATION
  Report Type: Spontaneous
  Country: US (occurrence: US)
  Receive Date: 20251230
  Receipt Date: 20251230
  Transmission Date: 20260118
  Serious: No
  Sender: CIPLA
  Company Number: US-CIPLA LTD.-2025US16371

PATIENT

DRUGS (2)
  1. DICLOFENAC [Suspect]
     Active Substance: DICLOFENAC
     Indication: Arthralgia
     Dosage: UNK (3 YEARS AGO)
     Route: 061
     Dates: start: 2022
  2. DICLOFENAC [Suspect]
     Active Substance: DICLOFENAC
     Dosage: UNK (RECENTLY)
     Route: 061
     Dates: start: 2025

REACTIONS (2)
  - Off label use [Unknown]
  - Product label issue [Unknown]

NARRATIVE: CASE EVENT DATE: 20220101
